FAERS Safety Report 18192473 (Version 4)
Quarter: 2023Q4

REPORT INFORMATION
  Report Type: Report from Study
  Country: FR (occurrence: FR)
  Receive Date: 20200825
  Receipt Date: 20231129
  Transmission Date: 20240110
  Serious: Yes (Hospitalization)
  Sender: FDA-Public Use
  Company Number: FR-PFIZER INC-2020294258

PATIENT
  Age: 48 Year
  Sex: Female
  Weight: 60 kg

DRUGS (11)
  1. TRAMADOL [Suspect]
     Active Substance: TRAMADOL\TRAMADOL HYDROCHLORIDE
     Indication: Back pain
     Dosage: UNK UNK, QD,(20 (UNITS NOT PROVIDED), 2X/DAY)
     Route: 065
  2. TRAMADOL [Suspect]
     Active Substance: TRAMADOL\TRAMADOL HYDROCHLORIDE
     Dosage: UNK, QD (20 (UNITS NOT PROVIDED), 2X/DAY )
     Route: 065
  3. TALAZOPARIB [Suspect]
     Active Substance: TALAZOPARIB
     Indication: Breast cancer
     Dosage: UNK
     Route: 065
  4. TALAZOPARIB [Suspect]
     Active Substance: TALAZOPARIB
     Indication: Breast cancer metastatic
     Dosage: 1 MILLIGRAM, QD, (1 MG, DAILY)
     Route: 048
     Dates: start: 20190403, end: 20190706
  5. TALAZOPARIB [Suspect]
     Active Substance: TALAZOPARIB
     Dosage: 1 MILLIGRAM, QD, (1 MG, DAILY)
     Route: 065
     Dates: end: 20190723
  6. TALAZOPARIB [Suspect]
     Active Substance: TALAZOPARIB
     Dosage: 0.75 MILLIGRAM, (0.75 MG)
     Route: 065
     Dates: end: 20191104
  7. TALAZOPARIB [Suspect]
     Active Substance: TALAZOPARIB
     Dosage: 0.25 MG
     Route: 065
  8. TALAZOPARIB [Suspect]
     Active Substance: TALAZOPARIB
     Dosage: 0.75 MG
     Route: 065
  9. TALAZOPARIB [Suspect]
     Active Substance: TALAZOPARIB
     Dosage: 0.75 MILLIGRAM, (0.75 MG)
     Route: 065
  10. TALAZOPARIB [Suspect]
     Active Substance: TALAZOPARIB
     Dosage: 0.25 MILLIGRAM, (0.25 MG )
     Route: 065
  11. PROPRANOLOL HYDROCHLORIDE [Concomitant]
     Active Substance: PROPRANOLOL HYDROCHLORIDE
     Indication: Tachycardia
     Dosage: UNK
     Route: 048
     Dates: start: 20070910

REACTIONS (6)
  - Anaemia [Recovered/Resolved with Sequelae]
  - Asthenia [Not Recovered/Not Resolved]
  - Dyspnoea exertional [Not Recovered/Not Resolved]
  - Back pain [Unknown]
  - Nausea [Recovered/Resolved]
  - Vomiting [Recovered/Resolved]

NARRATIVE: CASE EVENT DATE: 20190605
